FAERS Safety Report 12262805 (Version 1)
Quarter: 2016Q2

REPORT INFORMATION
  Report Type: Spontaneous
  Country: US (occurrence: US)
  Receive Date: 20160413
  Receipt Date: 20160413
  Transmission Date: 20160815
  Serious: Yes (Other)
  Sender: FDA-Public Use
  Company Number: US-BAYER-2016-063843

PATIENT
  Age: 36 Year
  Sex: Male

DRUGS (1)
  1. GADAVIST [Suspect]
     Active Substance: GADOBUTROL
     Indication: NUCLEAR MAGNETIC RESONANCE IMAGING BRAIN
     Dosage: 7.5 ML, ONCE
     Dates: start: 20160331, end: 20160331

REACTIONS (8)
  - Abdominal pain upper [None]
  - Hyperhidrosis [Unknown]
  - Pain in extremity [Unknown]
  - Presyncope [Unknown]
  - Hypotension [Unknown]
  - Dizziness [Unknown]
  - Unresponsive to stimuli [Unknown]
  - Pain in extremity [None]

NARRATIVE: CASE EVENT DATE: 20160331
